FAERS Safety Report 25353626 (Version 1)
Quarter: 2025Q2

REPORT INFORMATION
  Report Type: Report from Study
  Country: CA (occurrence: CA)
  Receive Date: 20250523
  Receipt Date: 20250523
  Transmission Date: 20250716
  Serious: Yes (Other)
  Sender: AMARIN
  Company Number: CA-Amarin Pharma  Inc-2025AMR000382

PATIENT
  Age: 65 Year
  Sex: Male
  Weight: 118.3 kg

DRUGS (6)
  1. VASCEPA [Suspect]
     Active Substance: ICOSAPENT ETHYL
     Indication: Cardiovascular event prophylaxis
     Dates: start: 202005, end: 202012
  2. VASCEPA [Suspect]
     Active Substance: ICOSAPENT ETHYL
     Indication: Hypertriglyceridaemia
     Dosage: ONE CAPSULE TWICE DAILY FOR 100 DAYS
     Dates: start: 202012, end: 2021
  3. VASCEPA [Suspect]
     Active Substance: ICOSAPENT ETHYL
     Dates: start: 202107
  4. DUTASTERIDE [Concomitant]
     Active Substance: DUTASTERIDE
     Indication: Product used for unknown indication
     Dosage: 1 CAPSULE ONE DAILY FOR 100 DAYS
     Dates: start: 202002
  5. FLOMAX [Concomitant]
     Active Substance: TAMSULOSIN HYDROCHLORIDE
     Indication: Product used for unknown indication
     Dosage: 1 TABLET ONCE DAILY FOR 100 DAYS
     Dates: start: 202002
  6. CITALOPRAM HYDROBROMIDE [Concomitant]
     Active Substance: CITALOPRAM HYDROBROMIDE
     Indication: Product used for unknown indication
     Dosage: 1 TABLET ONCE DAILY FOR 100 DAYS
     Dates: start: 202012

REACTIONS (6)
  - Coronary artery stenosis [Unknown]
  - Renal impairment [Unknown]
  - Weight increased [Unknown]
  - Blood triglycerides increased [Unknown]
  - Underdose [Unknown]
  - Off label use [Unknown]

NARRATIVE: CASE EVENT DATE: 20200101
